FAERS Safety Report 10308592 (Version 4)
Quarter: 2015Q3

REPORT INFORMATION
  Report Type: Report from Study
  Country: JP (occurrence: JP)
  Receive Date: 20140716
  Receipt Date: 20150806
  Transmission Date: 20151125
  Serious: Yes (Death)
  Sender: FDA-Public Use
  Company Number: JP-GLAXOSMITHKLINE-B0881556A

PATIENT
  Age: 85 Year
  Sex: Male

DRUGS (26)
  1. PREDONINE [Suspect]
     Active Substance: PREDNISOLONE\PREDNISOLONE ACETATE\PREDNISOLONE SODIUM SUCCINATE
     Dosage: 4 MG, 1D
     Route: 048
     Dates: start: 20110620, end: 20110712
  2. FERROMIA [Concomitant]
     Active Substance: FERROUS CITRATE
     Dosage: 50 MG, 1D
     Dates: end: 20110823
  3. ELTROMBOPAG [Suspect]
     Active Substance: ELTROMBOPAG
     Dosage: 12.5 MG, 1D
     Route: 048
     Dates: start: 20110523, end: 20110712
  4. PREDONINE [Suspect]
     Active Substance: PREDNISOLONE\PREDNISOLONE ACETATE\PREDNISOLONE SODIUM SUCCINATE
     Indication: IMMUNE THROMBOCYTOPENIC PURPURA
     Dosage: 5 MG, 1D
     Route: 048
     Dates: start: 20110418, end: 20110619
  5. AZACTAM [Concomitant]
     Active Substance: AZTREONAM
     Dosage: 2 G, 1D
     Dates: start: 20110727, end: 20110803
  6. UNKNOWN DRUG [Concomitant]
     Active Substance: UNSPECIFIED INGREDIENT
  7. MAGNESIUM OXIDE. [Concomitant]
     Active Substance: MAGNESIUM OXIDE
     Dosage: 1 G, 1D
     Dates: end: 20110823
  8. AMIKACIN SULPHATE [Concomitant]
     Active Substance: AMIKACIN SULFATE
     Dosage: 200 MG, 1D
     Dates: start: 20110727, end: 20110802
  9. GASTER [Concomitant]
     Active Substance: FAMOTIDINE
     Dosage: 20 MG, 1D
  10. ELTROMBOPAG [Suspect]
     Active Substance: ELTROMBOPAG
     Dosage: 37.5 MG, 1D
     Route: 048
     Dates: start: 20110425, end: 20110515
  11. ELTROMBOPAG [Suspect]
     Active Substance: ELTROMBOPAG
     Dosage: 12.5 MG, QOD
     Route: 048
     Dates: start: 20110713, end: 20110727
  12. HALFDIGOXIN [Concomitant]
     Active Substance: DIGOXIN
     Dosage: 0.125 MG, 1D
     Dates: end: 20110823
  13. CALONAL [Concomitant]
     Active Substance: ACETAMINOPHEN
     Indication: PAIN
     Dosage: 400 MG, 1D
  14. ELTROMBOPAG [Suspect]
     Active Substance: ELTROMBOPAG
     Dosage: 25 MG, 1D
     Route: 048
     Dates: start: 20110413, end: 20110424
  15. ELTROMBOPAG [Suspect]
     Active Substance: ELTROMBOPAG
     Dosage: 25 MG, 1D
     Route: 048
     Dates: start: 20110516, end: 20110522
  16. MUCOSOLVAN L [Concomitant]
     Active Substance: AMBROXOL HYDROCHLORIDE
     Dosage: 45 MG, 1D
     Dates: end: 20110823
  17. TAKEPRON [Concomitant]
     Active Substance: LANSOPRAZOLE
     Dosage: 15 MG, 1D
     Dates: end: 20110823
  18. ELTROMBOPAG [Suspect]
     Active Substance: ELTROMBOPAG
     Indication: IMMUNE THROMBOCYTOPENIC PURPURA
     Dosage: 12.5 MG, 1D
     Route: 048
     Dates: start: 20110331, end: 20110412
  19. PREDONINE [Suspect]
     Active Substance: PREDNISOLONE\PREDNISOLONE ACETATE\PREDNISOLONE SODIUM SUCCINATE
     Indication: IMMUNE THROMBOCYTOPENIC PURPURA
     Dosage: 5 MG, 1D
     Route: 042
     Dates: start: 20110727, end: 20111004
  20. MUCODYNE [Concomitant]
     Active Substance: CARBOCYSTEINE
     Dosage: 1500 MG, 1D
     Dates: end: 20110823
  21. PREDONINE [Suspect]
     Active Substance: PREDNISOLONE\PREDNISOLONE ACETATE\PREDNISOLONE SODIUM SUCCINATE
     Dosage: 3 MG, 1D
     Route: 048
     Dates: start: 20110713, end: 20110726
  22. CELECOX [Concomitant]
     Active Substance: CELECOXIB
     Dosage: 200 MG, 1D
     Dates: end: 20110823
  23. ELTROMBOPAG [Suspect]
     Active Substance: ELTROMBOPAG
     Dosage: 12.5 MG, QOD
     Route: 048
     Dates: start: 20110812, end: 20110823
  24. MAGNESIUM OXIDE. [Concomitant]
     Active Substance: MAGNESIUM OXIDE
     Dosage: 1.5 G, 1D
  25. FUROSEMIDE. [Concomitant]
     Active Substance: FUROSEMIDE
     Dosage: 20 MG, 1D
     Dates: end: 20110823
  26. ASPARA POTASSIUM [Concomitant]
     Active Substance: POTASSIUM ASPARTATE
     Indication: PROPHYLAXIS
     Dosage: 900 MG, 1D

REACTIONS (4)
  - Infection [Fatal]
  - Abdominal discomfort [Recovering/Resolving]
  - Nausea [Recovering/Resolving]
  - Decreased appetite [Recovering/Resolving]

NARRATIVE: CASE EVENT DATE: 20110413
